FAERS Safety Report 10076439 (Version 2)
Quarter: 2014Q2

REPORT INFORMATION
  Report Type: Report from Study
  Country: US (occurrence: US)
  Receive Date: 20140414
  Receipt Date: 20140620
  Transmission Date: 20141212
  Serious: No
  Sender: FDA-Public Use
  Company Number: US-JNJFOC-20140110448

PATIENT
  Age: 46 Year
  Sex: Male

DRUGS (1)
  1. STELARA [Suspect]
     Indication: PSORIASIS
     Route: 058
     Dates: start: 20110513, end: 20131206

REACTIONS (7)
  - Sleep apnoea syndrome [Unknown]
  - Pneumonia [Unknown]
  - Bronchitis [Unknown]
  - Sinusitis [Unknown]
  - Upper respiratory tract infection [Unknown]
  - Blood testosterone decreased [Unknown]
  - Tooth infection [Unknown]
